FAERS Safety Report 11610813 (Version 1)
Quarter: 2015Q4

REPORT INFORMATION
  Report Type: Spontaneous
  Country: US (occurrence: US)
  Receive Date: 20151008
  Receipt Date: 20151008
  Transmission Date: 20160304
  Serious: Yes (Death, Other)
  Sender: FDA-Public Use
  Company Number: US-ACTAVIS-2015-21366

PATIENT
  Age: 21 Year
  Sex: Female

DRUGS (4)
  1. BENADRYL [Suspect]
     Active Substance: DIPHENHYDRAMINE HYDROCHLORIDE
     Dosage: 25 MG, SINGLE
     Route: 042
  2. BENADRYL [Suspect]
     Active Substance: DIPHENHYDRAMINE HYDROCHLORIDE
     Indication: PRURITUS
     Dosage: 25 MG, SINGLE
     Route: 065
  3. MORPHINE SULFATE (WATSON LABORATORIES) [Suspect]
     Active Substance: MORPHINE SULFATE
     Indication: ANALGESIC THERAPY
     Dosage: UNK
     Route: 042
  4. MORPHINE SULFATE (WATSON LABORATORIES) [Suspect]
     Active Substance: MORPHINE SULFATE
     Indication: ANALGESIC THERAPY
     Dosage: UNK
     Route: 042

REACTIONS (5)
  - Drug dispensing error [Fatal]
  - Accidental overdose [Fatal]
  - Drug level above therapeutic [Fatal]
  - Pruritus [Unknown]
  - Cardio-respiratory arrest [Fatal]
